FAERS Safety Report 5517094-2 (Version None)
Quarter: 2007Q4

REPORT INFORMATION
  Report Type: 
  Country: None (occurrence: None)
  Receive Date: 20071114
  Receipt Date: 20070815
  Transmission Date: 20080405
  Serious: No
  Sender: FDA-Public Use
  Company Number: A0669917A

PATIENT
  Age: 48 Year
  Sex: Female

DRUGS (1)
  1. COMMIT [Suspect]

REACTIONS (7)
  - DIARRHOEA [None]
  - FEELING HOT [None]
  - GASTRIC DISORDER [None]
  - HYPERHIDROSIS [None]
  - MALAISE [None]
  - MUSCLE SPASMS [None]
  - POISONING [None]
